FAERS Safety Report 7545032 (Version 5)
Quarter: 2014Q1

REPORT INFORMATION
  Report Type: Spontaneous
  Country: US (occurrence: US)
  Receive Date: 20100818
  Receipt Date: 20140122
  Transmission Date: 20141002
  Serious: Yes (Hospitalization)
  Sender: FDA-Public Use
  Company Number: US-BAYER-201030594NA

PATIENT
  Age: 16 Year
  Sex: Female
  Weight: 105.67 kg

DRUGS (9)
  1. LIPITOR [Concomitant]
     Dosage: 20 MG, QD
     Route: 048
  2. LIPITOR [Concomitant]
  3. ZOLOFT [Concomitant]
     Indication: DEPRESSION
     Dosage: 50 MG, QD
     Route: 048
  4. ALLEGRA [Concomitant]
     Dosage: 180 MG, QD
     Route: 048
  5. TUSSI-12 [Concomitant]
     Indication: COUGH
     Dosage: UNK UNK, BID
     Route: 048
  6. VITAMIN K [Concomitant]
  7. YASMIN [Suspect]
     Indication: CONTRACEPTION
     Dosage: UNK
     Route: 048
     Dates: start: 200212, end: 200304
  8. LISINOPRIL [Concomitant]
     Dosage: UNK
     Dates: start: 2003, end: 2010
  9. NSAID^S [Concomitant]

REACTIONS (3)
  - Deep vein thrombosis [Unknown]
  - Pulmonary embolism [Unknown]
  - Depression [None]
